FAERS Safety Report 8936910 (Version 3)
Quarter: 2023Q2

REPORT INFORMATION
  Report Type: Report from Study
  Country: CA (occurrence: CA)
  Receive Date: 20121130
  Receipt Date: 20230626
  Transmission Date: 20230721
  Serious: Yes (Hospitalization, Other)
  Sender: FDA-Public Use
  Company Number: CA-SHIRE-ALL1-2012-05870

PATIENT
  Age: 15 Year
  Sex: Male
  Weight: 29.5 kg

DRUGS (27)
  1. IDURSULFASE [Suspect]
     Active Substance: IDURSULFASE
     Indication: Mucopolysaccharidosis II
     Dosage: 0.5 MILLIGRAM/KILOGRAM, 1/WEEK
     Route: 042
     Dates: start: 20080813, end: 20090909
  2. IDURSULFASE [Suspect]
     Active Substance: IDURSULFASE
     Dosage: 0.5 MILLIGRAM/KILOGRAM, 1/WEEK
     Route: 042
     Dates: start: 20090914, end: 20100719
  3. IDURSULFASE [Suspect]
     Active Substance: IDURSULFASE
     Dosage: 0.5 MILLIGRAM/KILOGRAM, 1/WEEK
     Route: 042
     Dates: start: 20100726
  4. PREDNISONE [Concomitant]
     Active Substance: PREDNISONE
     Indication: Premedication
     Dosage: 30 MILLIGRAM, 1/WEEK
     Route: 048
     Dates: start: 20120304
  5. ATROVENT [Concomitant]
     Active Substance: IPRATROPIUM BROMIDE
     Indication: Nasal congestion
     Dosage: UNK
     Route: 045
     Dates: start: 20110611
  6. DIPHENHYDRAMINE [Concomitant]
     Active Substance: DIPHENHYDRAMINE
     Indication: Premedication
     Dosage: 37.5 MILLIGRAM
     Route: 050
     Dates: start: 20081001
  7. PULMICORT TURBUHALER [Concomitant]
     Active Substance: BUDESONIDE
     Indication: Respiratory disorder
     Dosage: 1 MILLIGRAM, BID
     Route: 055
     Dates: start: 2008
  8. ACETAMINOPHEN [Concomitant]
     Active Substance: ACETAMINOPHEN
     Indication: Premedication
     Dosage: 350 MILLIGRAM
     Route: 048
     Dates: start: 20080822
  9. ACETAMINOPHEN [Concomitant]
     Active Substance: ACETAMINOPHEN
     Dosage: 350 MILLIGRAM
     Route: 065
     Dates: start: 20080911
  10. ALBUTEROL [Concomitant]
     Active Substance: ALBUTEROL
     Indication: Premedication
     Dosage: 1 DOSAGE FORM
     Route: 055
     Dates: start: 2005
  11. ALBUTEROL [Concomitant]
     Active Substance: ALBUTEROL
     Dosage: 0.9 MILLILITER
     Route: 055
     Dates: start: 20080813
  12. MELATONIN [Concomitant]
     Active Substance: MELATONIN
     Indication: Sleep disorder
     Dosage: 6 MILLIGRAM, QD
     Route: 050
  13. MELATONIN [Concomitant]
     Active Substance: MELATONIN
     Dosage: 2 MILLIGRAM, QD
     Route: 048
     Dates: start: 200803
  14. TEGRETOL [Concomitant]
     Active Substance: CARBAMAZEPINE
     Indication: Nervous system disorder
     Dosage: 140 MILLIGRAM, QD
     Route: 048
     Dates: start: 20070514
  15. TEGRETOL [Concomitant]
     Active Substance: CARBAMAZEPINE
     Dosage: 100 MILLIGRAM, QD
     Route: 048
     Dates: start: 20070514
  16. FLONASE [Concomitant]
     Active Substance: FLUTICASONE PROPIONATE
     Indication: Respiratory disorder
     Dosage: 125 MICROGRAM, BID
     Route: 055
     Dates: start: 2005, end: 2007
  17. FLONASE [Concomitant]
     Active Substance: FLUTICASONE PROPIONATE
     Dosage: 50 MICROGRAM, BID
     Route: 055
     Dates: start: 2007
  18. ZANTAC [Concomitant]
     Active Substance: RANITIDINE HYDROCHLORIDE
     Indication: Gastrointestinal disorder
     Dosage: 30 MILLIGRAM, QD
     Route: 048
     Dates: start: 2006
  19. METHYLPREDNISOLONE [Concomitant]
     Active Substance: METHYLPREDNISOLONE
     Indication: Premedication
     Dosage: 30 MILLIGRAM
     Route: 042
     Dates: start: 20081008, end: 20081126
  20. METHYLPREDNISOLONE [Concomitant]
     Active Substance: METHYLPREDNISOLONE
     Dosage: 40 MILLIGRAM
     Route: 042
     Dates: start: 20081126
  21. LACTULOSE [Concomitant]
     Active Substance: LACTULOSE
     Indication: Nutritional supplementation
     Dosage: 10 MILLILITER, BID
     Route: 050
  22. CLONAZEPAM [Concomitant]
     Active Substance: CLONAZEPAM
     Indication: Sleep disorder
     Dosage: 0.2 MILLIGRAM, QD
     Route: 050
  23. CHOLECALCIFEROL [Concomitant]
     Active Substance: CHOLECALCIFEROL
     Indication: Vitamin supplementation
     Dosage: 400 MILLIGRAM, QD
     Route: 050
  24. GABAPENTIN [Concomitant]
     Active Substance: GABAPENTIN
     Indication: Pain
     Dosage: 300 MILLIGRAM, QD
     Route: 050
  25. TYLENOL [Concomitant]
     Active Substance: ACETAMINOPHEN
     Indication: Premedication
     Dosage: 350 MG, UNKNOWN
     Route: 050
  26. VENTOLIN [Concomitant]
     Active Substance: ALBUTEROL SULFATE
     Indication: Respiratory disorder
     Dosage: 1 DOSAGE FORM
     Route: 055
     Dates: start: 2005
  27. AMOXICILLIN [Concomitant]
     Active Substance: AMOXICILLIN
     Indication: Anti-infective therapy
     Dosage: UNK
     Route: 065
     Dates: start: 20120111, end: 20120118

REACTIONS (5)
  - Stridor [Recovering/Resolving]
  - Pharyngeal oedema [Recovered/Resolved]
  - Viral infection [Recovering/Resolving]
  - Increased upper airway secretion [Recovering/Resolving]
  - Respiratory distress [Recovering/Resolving]

NARRATIVE: CASE EVENT DATE: 20121111
